FAERS Safety Report 4483078-9 (Version None)
Quarter: 2004Q4

REPORT INFORMATION
  Report Type: 
  Country: None (occurrence: None)
  Receive Date: 20041022
  Receipt Date: 20041015
  Transmission Date: 20050328
  Serious: Yes (Other)
  Sender: FDA-Public Use
  Company Number: PHHO2004NZ14677

PATIENT
  Age: 28 Year
  Sex: Male

DRUGS (2)
  1. CLOZARIL [Suspect]
     Indication: BIPOLAR DISORDER
     Dosage: 300 MG/DAY
     Dates: start: 20040723, end: 20041014
  2. LITHIUM [Concomitant]
     Dosage: 1200 MG/DAY

REACTIONS (3)
  - BUNDLE BRANCH BLOCK RIGHT [None]
  - FALL [None]
  - LOSS OF CONSCIOUSNESS [None]
